FAERS Safety Report 17258913 (Version 3)
Quarter: 2020Q2

REPORT INFORMATION
  Report Type: Report from Study
  Country: GB (occurrence: GB)
  Receive Date: 20200110
  Receipt Date: 20200507
  Transmission Date: 20200713
  Serious: Yes (Other)
  Sender: FDA-Public Use
  Company Number: GB-BAUSCH-BL-2020-000519

PATIENT
  Age: 59 Year
  Sex: Female

DRUGS (2)
  1. KYNTHEUM [Suspect]
     Active Substance: BRODALUMAB
     Indication: PSORIASIS
     Dosage: PRE-FILLED SYRINGE, 210 MG WEEK 0, 1, 2 THEN EVERY TWO WEEK
     Route: 058
     Dates: start: 20190828, end: 20200130
  2. KYNTHEUM [Suspect]
     Active Substance: BRODALUMAB
     Route: 058
     Dates: start: 2020

REACTIONS (5)
  - Therapy interrupted [Unknown]
  - Uveitis [Not Recovered/Not Resolved]
  - Candida infection [Unknown]
  - Nasopharyngitis [Not Recovered/Not Resolved]
  - Oral pain [Not Recovered/Not Resolved]

NARRATIVE: CASE EVENT DATE: 2019
